FAERS Safety Report 4632686-0 (Version None)
Quarter: 2005Q2

REPORT INFORMATION
  Report Type: 
  Country: None (occurrence: None)
  Receive Date: 20050412
  Receipt Date: 20050331
  Transmission Date: 20051028
  Serious: Yes (Hospitalization)
  Sender: FDA-Public Use
  Company Number: US-JNJFOC-20050400388

PATIENT

DRUGS (1)
  1. INFLIXIMAB [Suspect]
     Dosage: 5-10 MG/KG
     Route: 042

REACTIONS (2)
  - COLITIS ULCERATIVE [None]
  - HERPES ZOSTER [None]
